FAERS Safety Report 10163772 (Version 2)
Quarter: 2014Q3

REPORT INFORMATION
  Report Type: Report from Study
  Country: DE (occurrence: NL)
  Receive Date: 20140509
  Receipt Date: 20140829
  Transmission Date: 20150326
  Serious: Yes (Hospitalization, Other)
  Sender: FDA-Public Use
  Company Number: DE-ACTELION-A-NJ2010-98346

PATIENT
  Age: 68 Year
  Sex: Female

DRUGS (10)
  1. FUROSEMIDE. [Concomitant]
     Active Substance: FUROSEMIDE
  2. CRESTOR [Concomitant]
     Active Substance: ROSUVASTATIN CALCIUM
  3. NAPROXEN. [Suspect]
     Active Substance: NAPROXEN
     Indication: BURSITIS
     Dosage: 220 MG, UNK
     Route: 065
  4. VENTAVIS [Suspect]
     Active Substance: ILOPROST
     Indication: PULMONARY ARTERIAL HYPERTENSION
     Dosage: 5 MCG, 6 AMPULES DAILY
     Route: 055
     Dates: start: 20091229
  5. SPIRONOLACTONE. [Concomitant]
     Active Substance: SPIRONOLACTONE
  6. MARCOUMAR [Concomitant]
     Active Substance: PHENPROCOUMON
  7. ALLOPURINOL. [Concomitant]
     Active Substance: ALLOPURINOL
  8. VENTAVIS [Suspect]
     Active Substance: ILOPROST
     Dosage: UNK, Q6HRS
     Route: 055
     Dates: start: 20120910, end: 20120915
  9. VENTAVIS [Suspect]
     Active Substance: ILOPROST
     Dosage: UNK
     Route: 055
  10. ENALAPRIL [Concomitant]
     Active Substance: ENALAPRIL

REACTIONS (14)
  - Renal impairment [Unknown]
  - Dehydration [Recovered/Resolved]
  - Respiratory rate increased [Recovered/Resolved]
  - Respiratory rate decreased [Recovered/Resolved]
  - Abdominal pain upper [Unknown]
  - Wrong technique in drug usage process [Unknown]
  - Syncope [Recovered/Resolved]
  - Fluid retention [Unknown]
  - Nasopharyngitis [Not Recovered/Not Resolved]
  - Diarrhoea [Recovered/Resolved]
  - Exercise tolerance decreased [Unknown]
  - General physical health deterioration [Not Recovered/Not Resolved]
  - Bursitis [Unknown]
  - Hypotension [Recovered/Resolved]

NARRATIVE: CASE EVENT DATE: 20120910
